FAERS Safety Report 5946851-3 (Version None)
Quarter: 2008Q4

REPORT INFORMATION
  Report Type: 
  Country: None (occurrence: None)
  Receive Date: 20081107
  Receipt Date: 20081107
  Transmission Date: 20090506
  Serious: Yes (Other)
  Sender: FDA-Public Use
  Company Number: None

PATIENT
  Age: 55 Year
  Sex: Female
  Weight: 82.1011 kg

DRUGS (1)
  1. ZYRTEC [Suspect]
     Dosage: 1 DAILY
     Dates: start: 20081021, end: 20081030

REACTIONS (6)
  - APHONIA [None]
  - CONDITION AGGRAVATED [None]
  - HYPERSENSITIVITY [None]
  - MEDICATION ERROR [None]
  - PULMONARY CONGESTION [None]
  - THROAT TIGHTNESS [None]
